FAERS Safety Report 6407422-8 (Version None)
Quarter: 2009Q4

REPORT INFORMATION
  Report Type: 
  Country: None (occurrence: None)
  Receive Date: 20091014
  Receipt Date: 20090929
  Transmission Date: 20100525
  Serious: Yes (Hospitalization)
  Sender: FDA-Public Use
  Company Number: 20090313

PATIENT
  Age: 30 Year
  Sex: Female

DRUGS (6)
  1. VENOFER [Suspect]
     Indication: IRON DEFICIENCY ANAEMIA
     Dosage: 300 MG INTRAVENOUS DRIP
     Route: 041
     Dates: start: 20090630, end: 20090702
  2. ACETAMINOPHEN [Concomitant]
  3. LOVENOX [Concomitant]
  4. NAROPIN [Concomitant]
  5. NIFLURIL [Concomitant]
  6. SUFENTANIL CITRATE [Concomitant]

REACTIONS (4)
  - ARTHRALGIA [None]
  - INFUSION SITE INDURATION [None]
  - INJECTION SITE THROMBOSIS [None]
  - THROMBOPHLEBITIS SUPERFICIAL [None]
